FAERS Safety Report 8049266-X (Version None)
Quarter: 2012Q1

REPORT INFORMATION
  Report Type: 
  Country: None (occurrence: None)
  Receive Date: 20120117
  Receipt Date: 20120106
  Transmission Date: 20120608
  Serious: Yes (Other)
  Sender: FDA-Public Use
  Company Number: US-ELI_LILLY_AND_COMPANY-US201201003080

PATIENT
  Age: 16 Year
  Sex: Female

DRUGS (4)
  1. CYMBALTA [Suspect]
     Dosage: 30 MG, QD
     Dates: start: 20111225, end: 20111229
  2. CYMBALTA [Suspect]
     Dosage: 60 MG, QD
     Dates: start: 20111101, end: 20111224
  3. MELATONIN [Concomitant]
  4. CYMBALTA [Suspect]
     Indication: HEADACHE
     Dosage: 30 MG, QD
     Dates: start: 20111108, end: 20111101

REACTIONS (11)
  - SUICIDAL IDEATION [None]
  - INTENTIONAL DRUG MISUSE [None]
  - HEADACHE [None]
  - PALPITATIONS [None]
  - SENSORY LOSS [None]
  - URTICARIA [None]
  - INTENTIONAL SELF-INJURY [None]
  - OFF LABEL USE [None]
  - SLEEP DISORDER [None]
  - IRRITABILITY [None]
  - TREMOR [None]
